FAERS Safety Report 7776603-3 (Version None)
Quarter: 2011Q3

REPORT INFORMATION
  Report Type: 
  Country: None (occurrence: None)
  Receive Date: 20110926
  Receipt Date: 20110916
  Transmission Date: 20111222
  Serious: Yes (Hospitalization, Other)
  Sender: FDA-Public Use
  Company Number: US-JNJFOC-20110907753

PATIENT
  Sex: Female
  Weight: 54.43 kg

DRUGS (9)
  1. TOPAMAX [Suspect]
     Indication: MIGRAINE
     Route: 048
     Dates: start: 20000101
  2. FLUTICASONE PROPIONATE [Concomitant]
     Indication: MULTIPLE ALLERGIES
     Route: 055
  3. NORVASC [Concomitant]
     Indication: CARDIAC DISORDER
     Route: 048
  4. PERCOCET [Concomitant]
     Indication: PAIN
     Route: 048
     Dates: start: 20110101
  5. SINGULAIR [Concomitant]
     Indication: ASTHMA
     Route: 048
  6. SIMVASTATIN [Concomitant]
     Indication: BLOOD CHOLESTEROL INCREASED
     Route: 048
  7. OMEPRAZOLE [Concomitant]
     Indication: GASTROOESOPHAGEAL REFLUX DISEASE
     Route: 048
  8. OXYCODONE [Concomitant]
     Indication: PAIN
     Route: 048
     Dates: end: 20110101
  9. ADVAIR DISKUS 100/50 [Concomitant]
     Indication: ASTHMA
     Route: 048
     Dates: end: 20100101

REACTIONS (4)
  - ADDISON'S DISEASE [None]
  - FIBROMYALGIA [None]
  - SPINAL DISORDER [None]
  - THYROID DISORDER [None]
